FAERS Safety Report 8820033 (Version 1)
Quarter: 2012Q4

REPORT INFORMATION
  Report Type: 
  Country: US (occurrence: US)
  Receive Date: 20121001
  Receipt Date: 20121001
  Transmission Date: 20130627
  Serious: Yes (Hospitalization, Other)
  Sender: FDA-Public Use
  Company Number: US-ELI_LILLY_AND_COMPANY-US201209005811

PATIENT
  Age: 13 Month
  Sex: Female

DRUGS (2)
  1. ZYPREXA [Suspect]
     Dosage: 7.5 mg, UNK
  2. ZYPREXA [Suspect]
     Dosage: 22.5 mg, UNK

REACTIONS (2)
  - Wrong drug administered [Unknown]
  - Accidental overdose [Unknown]
